FAERS Safety Report 6785995-3 (Version None)
Quarter: 2010Q2

REPORT INFORMATION
  Report Type: 
  Country: None (occurrence: None)
  Receive Date: 20100623
  Receipt Date: 20100614
  Transmission Date: 20101027
  Serious: Yes (Other)
  Sender: FDA-Public Use
  Company Number: US-PFIZER INC-2010060485

PATIENT
  Sex: Female
  Weight: 68.027 kg

DRUGS (3)
  1. FLAGYL [Suspect]
     Indication: ORAL INFECTION
     Dosage: 250 MG, 3X/DAY
     Dates: start: 20100402
  2. DIFLUCAN [Suspect]
     Indication: FUNGAL INFECTION
     Dosage: 100 MG, 1X/DAY
     Route: 048
     Dates: start: 20100511
  3. NYSTATIN [Concomitant]
     Dosage: 5 ML, 4X/DAY
     Route: 048

REACTIONS (2)
  - DRUG HYPERSENSITIVITY [None]
  - FUNGAL INFECTION [None]
